FAERS Safety Report 25824288 (Version 1)
Quarter: 2025Q3

REPORT INFORMATION
  Report Type: Report from Study
  Country: US (occurrence: US)
  Receive Date: 20250919
  Receipt Date: 20250919
  Transmission Date: 20251020
  Serious: Yes (Other)
  Sender: RECKITT BENCKISER
  Company Number: US-Indivior Limited-INDV-176552-2025

PATIENT

DRUGS (2)
  1. SUBLOCADE [Suspect]
     Active Substance: BUPRENORPHINE
     Indication: Drug dependence
     Dosage: 300 MILLIGRAM, QMO
     Route: 058
     Dates: start: 20250903
  2. SUBLOCADE [Suspect]
     Active Substance: BUPRENORPHINE

REACTIONS (7)
  - Hydrocephalus [Unknown]
  - Thunderclap headache [Unknown]
  - Vision blurred [Unknown]
  - Swelling face [Unknown]
  - Cluster headache [Unknown]
  - Hypotension [Unknown]
  - Hypersomnia [Unknown]

NARRATIVE: CASE EVENT DATE: 20250903
